FAERS Safety Report 12424476 (Version 1)
Quarter: 2016Q2

REPORT INFORMATION
  Report Type: Spontaneous
  Country: US (occurrence: None)
  Receive Date: 20160531
  Receipt Date: 20160531
  Transmission Date: 20160815
  Serious: Yes (Hospitalization)
  Sender: FDA-Public Use
  Company Number: None

PATIENT
  Age: 16 Year
  Sex: Male
  Weight: 88 kg

DRUGS (1)
  1. OLANZAPINE, 5 MG [Suspect]
     Active Substance: OLANZAPINE
     Indication: PSYCHOTIC DISORDER
     Route: 030
     Dates: start: 20160304, end: 20160305

REACTIONS (5)
  - Tongue disorder [None]
  - Tension [None]
  - Tremor [None]
  - Muscle spasms [None]
  - Swollen tongue [None]

NARRATIVE: CASE EVENT DATE: 20160306
